FAERS Safety Report 24779857 (Version 1)
Quarter: 2024Q4

REPORT INFORMATION
  Report Type: Report from Study
  Country: US (occurrence: US)
  Receive Date: 20241226
  Receipt Date: 20241226
  Transmission Date: 20250114
  Serious: Yes (Hospitalization, Other)
  Sender: JOHNSON AND JOHNSON
  Company Number: US-JNJFOC-20241247985

PATIENT
  Age: 49 Year
  Sex: Male

DRUGS (1)
  1. SPRAVATO [Suspect]
     Active Substance: ESKETAMINE
     Indication: Depression
     Dosage: ^84 MG, 1 TOTAL DOSE^
     Route: 045
     Dates: start: 20241018, end: 20241018

REACTIONS (2)
  - Cardiovascular disorder [Unknown]
  - Panic attack [Unknown]

NARRATIVE: CASE EVENT DATE: 20240101
